FAERS Safety Report 5051823-X (Version None)
Quarter: 2006Q3

REPORT INFORMATION
  Report Type: 
  Country: None (occurrence: None)
  Receive Date: 20060710
  Receipt Date: 20060626
  Transmission Date: 20061208
  Serious: Yes (Death, Other)
  Sender: FDA-Public Use
  Company Number: 2006RL000237

PATIENT

DRUGS (2)
  1. FENOFIBRATE [Suspect]
     Indication: MIXED HYPERLIPIDAEMIA
     Dosage: 160 MG; QD;
  2. EZETIMIBE (EZETIMIBE) [Suspect]
     Indication: MIXED HYPERLIPIDAEMIA
     Dosage: 10 MG; QD;

REACTIONS (1)
  - CEREBRAL HAEMORRHAGE [None]
